FAERS Safety Report 22628641 (Version 1)
Quarter: 2023Q2

REPORT INFORMATION
  Report Type: Spontaneous
  Country: US (occurrence: None)
  Receive Date: 20230621
  Receipt Date: 20230621
  Transmission Date: 20230722
  Serious: Yes (Hospitalization)
  Sender: FDA-Public Use
  Company Number: None

PATIENT
  Age: 82 Year
  Sex: Male

DRUGS (7)
  1. ATORVASTATIN [Suspect]
     Active Substance: ATORVASTATIN
     Dosage: FREQUENCY : AT BEDTIME;?
     Route: 048
     Dates: start: 20230109, end: 20230608
  2. SPIRONOLACTONE [Concomitant]
     Active Substance: SPIRONOLACTONE
     Dates: start: 20220608
  3. OMEPRAZOLE [Concomitant]
     Active Substance: OMEPRAZOLE
     Dates: start: 20220608
  4. FINASTERIDE [Concomitant]
     Active Substance: FINASTERIDE
  5. ENTRESTO [Concomitant]
     Active Substance: SACUBITRIL\VALSARTAN
     Dates: start: 20220709
  6. CARVEDILOL [Concomitant]
     Active Substance: CARVEDILOL
     Dates: start: 20220608
  7. TICAGRELOR [Concomitant]
     Active Substance: TICAGRELOR
     Dates: start: 20220710

REACTIONS (3)
  - Myopathy [None]
  - Adverse drug reaction [None]
  - Myositis [None]

NARRATIVE: CASE EVENT DATE: 20230608
